FAERS Safety Report 4391929-1 (Version None)
Quarter: 2004Q3

REPORT INFORMATION
  Report Type: 
  Country: None (occurrence: None)
  Receive Date: 20040701
  Receipt Date: 20040610
  Transmission Date: 20050211
  Serious: Yes (Other)
  Sender: FDA-Public Use
  Company Number: USA040669811

PATIENT
  Age: 69 Year
  Sex: Male
  Weight: 58 kg

DRUGS (4)
  1. HUMALOG [Suspect]
     Indication: DIABETES MELLITUS NON-INSULIN-DEPENDENT
     Dosage: 8 U DAY
     Dates: start: 20020101
  2. LANTUS [Concomitant]
  3. GLUCOPHAGE [Concomitant]
  4. VITAMIN B-12 [Concomitant]

REACTIONS (9)
  - CEREBROVASCULAR ACCIDENT [None]
  - CONTUSION [None]
  - FALL [None]
  - FAT TISSUE INCREASED [None]
  - INJECTION SITE HAEMORRHAGE [None]
  - INJECTION SITE MASS [None]
  - MEDICATION ERROR [None]
  - PHARMACEUTICAL PRODUCT COMPLAINT [None]
  - WALKING AID USER [None]
